FAERS Safety Report 22623094 (Version 1)
Quarter: 2023Q2

REPORT INFORMATION
  Report Type: Report from Study
  Country: US (occurrence: US)
  Receive Date: 20230621
  Receipt Date: 20230621
  Transmission Date: 20230721
  Serious: Yes (Other)
  Sender: FDA-Public Use
  Company Number: US-ABBVIE-5297910

PATIENT
  Sex: Male

DRUGS (4)
  1. VENCLEXTA [Suspect]
     Active Substance: VENETOCLAX
     Indication: Plasma cell myeloma
     Dosage: STRENGTH 100 MG,  TAKE 2 TABLET(S) BY MOUTH EVERY DAY FOR 7 DAYS
     Route: 048
  2. VENCLEXTA [Suspect]
     Active Substance: VENETOCLAX
     Indication: Plasma cell myeloma
     Dosage: STRENGTH 100 MG, TAKE 4 TABLET(S) BY MOUTH EVERY DAY FOR 7 DAYS
     Route: 048
  3. VENCLEXTA [Suspect]
     Active Substance: VENETOCLAX
     Indication: Plasma cell myeloma
     Dosage: STRENGTH 100 MG, TAKE 6 TABLET(S) BY MOUTH EVERY DAY FOR 7 DAYS
     Route: 048
  4. VENCLEXTA [Suspect]
     Active Substance: VENETOCLAX
     Indication: Plasma cell myeloma
     Dosage: STRENGTH 100 MG, TAKE 8 TABLET(S) BY MOUTH EVERY DAY FOR 7 DAYS
     Route: 048

REACTIONS (3)
  - Cerebrovascular accident [Unknown]
  - Deafness [Unknown]
  - Off label use [Unknown]
